FAERS Safety Report 9457461 (Version 2)
Quarter: 2013Q3

REPORT INFORMATION
  Report Type: Report from Study
  Country: US (occurrence: US)
  Receive Date: 20130814
  Receipt Date: 20130926
  Transmission Date: 20140515
  Serious: Yes (Hospitalization, Other)
  Sender: FDA-Public Use
  Company Number: US-JNJFOC-20130802969

PATIENT
  Age: 45 Year
  Sex: Female

DRUGS (2)
  1. REMICADE [Suspect]
     Indication: RHEUMATOID ARTHRITIS
     Dosage: ^400^
     Route: 042
     Dates: start: 2012
  2. REMICADE [Suspect]
     Indication: RHEUMATOID ARTHRITIS
     Route: 042
     Dates: end: 200806

REACTIONS (13)
  - Polyp [Unknown]
  - Foot deformity [Not Recovered/Not Resolved]
  - Thyroid cancer [Recovered/Resolved]
  - Myocardial infarction [Recovered/Resolved]
  - Staphylococcal infection [Unknown]
  - Herpes zoster [Recovered/Resolved]
  - Intestinal obstruction [Recovered/Resolved]
  - Musculoskeletal stiffness [Unknown]
  - Pain in extremity [Unknown]
  - Muscle spasms [Unknown]
  - Blood glucose decreased [Not Recovered/Not Resolved]
  - Nausea [Unknown]
  - Infusion related reaction [Unknown]
